FAERS Safety Report 6520014-5 (Version None)
Quarter: 2009Q4

REPORT INFORMATION
  Report Type: 
  Country: None (occurrence: None)
  Receive Date: 20091229
  Receipt Date: 20091225
  Transmission Date: 20100525
  Serious: Yes (Death)
  Sender: FDA-Public Use
  Company Number: JP-ASTRAZENECA-2009SE27190

PATIENT
  Age: 23630 Day
  Sex: Male
  Weight: 50 kg

DRUGS (5)
  1. IRESSA [Suspect]
     Indication: LUNG ADENOCARCINOMA
     Route: 048
     Dates: start: 20090714, end: 20090816
  2. FERROMIA [Concomitant]
     Indication: IRON DEFICIENCY
     Route: 048
     Dates: start: 20090708, end: 20090816
  3. TAKEPRON [Concomitant]
     Indication: GASTRIC ULCER
     Route: 048
     Dates: start: 20090708, end: 20090816
  4. MAGMITT [Concomitant]
     Indication: CONSTIPATION
     Route: 048
     Dates: start: 20090713, end: 20090816
  5. YODEL-S [Concomitant]
     Indication: CONSTIPATION
     Route: 048
     Dates: start: 20090731, end: 20090816

REACTIONS (1)
  - LUNG DISORDER [None]
